FAERS Safety Report 8179676-1 (Version None)
Quarter: 2012Q1

REPORT INFORMATION
  Report Type: 
  Country: None (occurrence: None)
  Receive Date: 20120302
  Receipt Date: 20120227
  Transmission Date: 20120608
  Serious: Yes (Other)
  Sender: FDA-Public Use
  Company Number: US-JNJFOC-20120214402

PATIENT
  Age: 37 Year
  Sex: Female
  Weight: 108.86 kg

DRUGS (1)
  1. NEOSPORIN [Suspect]
     Indication: LACERATION
     Dosage: QUARTER-SIZED AMOUNT
     Route: 061
     Dates: start: 20120212, end: 20120218

REACTIONS (3)
  - BLISTER [None]
  - RASH [None]
  - PRURITUS [None]
